FAERS Safety Report 24887688 (Version 1)
Quarter: 2025Q1

REPORT INFORMATION
  Report Type: Spontaneous
  Country: US (occurrence: US)
  Receive Date: 20250127
  Receipt Date: 20250127
  Transmission Date: 20250408
  Serious: Yes (Death, Other)
  Sender: ORGANON
  Company Number: US-ORGANON-O2501USA002585

PATIENT
  Age: 66 Year
  Sex: Female

DRUGS (2)
  1. SINGULAIR [Suspect]
     Active Substance: MONTELUKAST SODIUM
     Indication: Rhinitis allergic
     Route: 048
  2. SINGULAIR [Suspect]
     Active Substance: MONTELUKAST SODIUM
     Indication: Sleep apnoea syndrome

REACTIONS (2)
  - Choking [Fatal]
  - Irregular breathing [Unknown]

NARRATIVE: CASE EVENT DATE: 20181231
